FAERS Safety Report 11566783 (Version 2)
Quarter: 2015Q4

REPORT INFORMATION
  Report Type: Spontaneous
  Country: US (occurrence: US)
  Receive Date: 20150916
  Receipt Date: 20151027
  Transmission Date: 20160304
  Serious: No
  Sender: FDA-Public Use
  Company Number: US-ELI_LILLY_AND_COMPANY-US200906005278

PATIENT
  Age: 69 Year
  Sex: Female

DRUGS (26)
  1. FORTEO [Suspect]
     Active Substance: TERIPARATIDE
     Dosage: 20 UG, DAILY (1/D)
     Route: 065
  2. FORTEO [Suspect]
     Active Substance: TERIPARATIDE
     Dosage: 20 UG, DAILY (1/D)
  3. TRIAMTERENE AND HYDROCHLOROTHIAZID [Concomitant]
     Active Substance: HYDROCHLOROTHIAZIDE\TRIAMTERENE
     Dosage: 50 MG, 75 MG, UNK
  4. ARMOUR THYROID [Concomitant]
     Active Substance: THYROID, PORCINE\THYROID, UNSPECIFIED
     Dosage: 45 MG, DAILY (1/D)
  5. NITRO                              /00003201/ [Concomitant]
     Dosage: 0.4 MG, AS NEEDED
  6. CALCIUM [Concomitant]
     Active Substance: CALCIUM
  7. FORTEO [Suspect]
     Active Substance: TERIPARATIDE
     Indication: OSTEOPOROSIS
     Dosage: 20 UG, DAILY (1/D)
     Route: 065
  8. METAMUCIL [Concomitant]
     Active Substance: PLANTAGO SEED
     Dosage: 1 D/F, 2/D
  9. CALCIUM CITRATE W/VITAMIN D NOS [Concomitant]
     Dosage: 630 MG, 4000 IU, UNK
  10. FORTEO [Suspect]
     Active Substance: TERIPARATIDE
     Dosage: 20 UG, DAILY (1/D)
  11. FORTEO [Suspect]
     Active Substance: TERIPARATIDE
     Dosage: 20 UG, DAILY (1/D)
  12. POTASSIUM CHLORIDE. [Concomitant]
     Active Substance: POTASSIUM CHLORIDE
     Dosage: 20 MEQ, 3/D
  13. SINGULAIR [Concomitant]
     Active Substance: MONTELUKAST SODIUM
     Dosage: 10 MG, DAILY (1/D)
  14. NEXIUM [Concomitant]
     Active Substance: ESOMEPRAZOLE MAGNESIUM
     Dosage: 40 MG, DAILY (1/D)
  15. ASTHMADEX [Concomitant]
     Dosage: 220 UG, DAILY (1/D)
  16. FORTEO [Suspect]
     Active Substance: TERIPARATIDE
     Dosage: 20 UG, DAILY (1/D)
     Route: 065
  17. ESTRADERM [Concomitant]
     Active Substance: ESTRADIOL
     Dosage: 0.1 MG, WEEKLY (1/W)
     Dates: start: 1987
  18. XANAX [Concomitant]
     Active Substance: ALPRAZOLAM
     Dosage: 0.5 MG, AS NEEDED
  19. PROVENTIL HFA [Concomitant]
     Active Substance: ALBUTEROL SULFATE
     Dosage: 2 D/F, 4/D
  20. VITAMIN D [Concomitant]
     Active Substance: CHOLECALCIFEROL
     Dosage: 1000 IU, DAILY (1/D)
  21. FORTEO [Suspect]
     Active Substance: TERIPARATIDE
     Dosage: 20 UG, DAILY (1/D)
     Route: 065
  22. FORTEO [Suspect]
     Active Substance: TERIPARATIDE
     Dosage: 20 UG, DAILY (1/D)
     Route: 065
  23. FORTEO [Suspect]
     Active Substance: TERIPARATIDE
     Dosage: 20 UG, DAILY (1/D)
     Route: 065
  24. VERAPAMIL [Concomitant]
     Active Substance: VERAPAMIL HYDROCHLORIDE
     Dosage: 240 MG, DAILY (1/D)
  25. HORMONES NOS [Concomitant]
     Active Substance: UNSPECIFIED INGREDIENT
  26. THEOPHYLLINE [Concomitant]
     Active Substance: THEOPHYLLINE ANHYDROUS
     Dosage: 300 MG, 2/D

REACTIONS (26)
  - Fall [Recovered/Resolved]
  - Spinal pain [Not Recovered/Not Resolved]
  - Neck pain [Not Recovered/Not Resolved]
  - Bone disorder [Unknown]
  - Headache [Not Recovered/Not Resolved]
  - Blood calcium increased [Unknown]
  - Head injury [Unknown]
  - Urinary tract disorder [Recovering/Resolving]
  - Weight increased [Not Recovered/Not Resolved]
  - Injury [Unknown]
  - Laceration [Recovered/Resolved]
  - Skin injury [Recovered/Resolved]
  - Intervertebral disc protrusion [Not Recovered/Not Resolved]
  - Cerebral atrophy [Unknown]
  - Hypoaesthesia [Recovering/Resolving]
  - Sinus headache [Unknown]
  - Weight decreased [Unknown]
  - Insomnia [Unknown]
  - Neck injury [Unknown]
  - Ear injury [Recovered/Resolved]
  - Back pain [Not Recovered/Not Resolved]
  - Myalgia [Not Recovered/Not Resolved]
  - Diarrhoea [Recovered/Resolved]
  - Intervertebral disc disorder [Unknown]
  - Osteoarthritis [Not Recovered/Not Resolved]
  - Feeling abnormal [Unknown]

NARRATIVE: CASE EVENT DATE: 20090625
